FAERS Safety Report 5954669-0 (Version None)
Quarter: 2008Q4

REPORT INFORMATION
  Report Type: 
  Country: None (occurrence: None)
  Receive Date: 20081117
  Receipt Date: 20081106
  Transmission Date: 20090506
  Serious: Yes (Hospitalization, Other)
  Sender: FDA-Public Use
  Company Number: US-AMGEN-QUU314058

PATIENT
  Sex: Male
  Weight: 88.5 kg

DRUGS (1)
  1. ENBREL [Suspect]
     Indication: PSORIATIC ARTHROPATHY
     Route: 058
     Dates: start: 20070222

REACTIONS (8)
  - ARTHRALGIA [None]
  - BASAL CELL CARCINOMA [None]
  - DEVICE FAILURE [None]
  - FALL [None]
  - JOINT EFFUSION [None]
  - JOINT SWELLING [None]
  - PAIN [None]
  - SKIN LESION [None]
